FAERS Safety Report 7013185-8 (Version None)
Quarter: 2010Q3

REPORT INFORMATION
  Report Type: 
  Country: None (occurrence: None)
  Receive Date: 20100924
  Receipt Date: 20100920
  Transmission Date: 20110219
  Serious: Yes (Death)
  Sender: FDA-Public Use
  Company Number: GB-SANOFI-AVENTIS-2010SA056468

PATIENT
  Age: 26 Year
  Sex: Female
  Weight: 93.1 kg

DRUGS (5)
  1. LANTUS [Suspect]
     Route: 058
  2. NOVORAPID [Suspect]
     Route: 058
     Dates: start: 20091002, end: 20091103
  3. ALL OTHER THERAPEUTIC PRODUCTS [Suspect]
     Dates: start: 20091002, end: 20091103
  4. FLUTICASONE PROPIONATE/SALMETEROL [Concomitant]
  5. SALBUTAMOL [Concomitant]
     Dates: start: 20070120

REACTIONS (1)
  - DEATH [None]
